FAERS Safety Report 15352753 (Version 3)
Quarter: 2018Q4

REPORT INFORMATION
  Report Type: Report from Study
  Country: PL (occurrence: PL)
  Receive Date: 20180905
  Receipt Date: 20181011
  Transmission Date: 20190204
  Serious: Yes (Other)
  Sender: FDA-Public Use
  Company Number: PL-REGENERON PHARMACEUTICALS, INC.-2018-36121

PATIENT

DRUGS (6)
  1. EYLEA [Suspect]
     Active Substance: AFLIBERCEPT
     Dosage: 50 ?L, UNK
     Route: 031
     Dates: start: 20180315, end: 20180315
  2. EYLEA [Suspect]
     Active Substance: AFLIBERCEPT
     Dosage: 50 ?L, UNK
     Route: 031
     Dates: start: 20180515, end: 20180515
  3. EYLEA [Suspect]
     Active Substance: AFLIBERCEPT
     Dosage: 50 ?L, UNK
     Route: 031
     Dates: start: 20180828
  4. EYLEA [Suspect]
     Active Substance: AFLIBERCEPT
     Indication: NEOVASCULAR AGE-RELATED MACULAR DEGENERATION
     Dosage: 50 ?L, UNK
     Route: 031
     Dates: start: 20180115, end: 20180115
  5. EYLEA [Suspect]
     Active Substance: AFLIBERCEPT
     Dosage: 50 ?L, UNK
     Route: 031
     Dates: start: 20180214, end: 20180214
  6. EYLEA [Suspect]
     Active Substance: AFLIBERCEPT
     Dosage: 50 ?L, UNK
     Route: 031
     Dates: start: 20180710, end: 20180710

REACTIONS (6)
  - Visual acuity reduced [Unknown]
  - Drug ineffective [Unknown]
  - Macular fibrosis [Unknown]
  - Visual impairment [Unknown]
  - Retinal haemorrhage [Unknown]
  - Entropion [Not Recovered/Not Resolved]

NARRATIVE: CASE EVENT DATE: 20180828
